FAERS Safety Report 9711699 (Version 1)
Quarter: 2013Q4

REPORT INFORMATION
  Report Type: Spontaneous
  Country: CH (occurrence: CH)
  Receive Date: 20131126
  Receipt Date: 20131126
  Transmission Date: 20140711
  Serious: Yes (Hospitalization, Other)
  Sender: FDA-Public Use
  Company Number: CH-009507513-1311CHE008235

PATIENT
  Age: 53 Year
  Sex: Female

DRUGS (4)
  1. REMERON [Suspect]
     Indication: POISONING DELIBERATE
     Dosage: 30 MG, 10 DOSE UNITS
     Route: 048
     Dates: start: 20131105, end: 20131105
  2. EFEXOR [Suspect]
     Indication: POISONING DELIBERATE
     Dosage: 150 MG, 30 DOSE UNITS
     Route: 048
     Dates: start: 20131105, end: 20131105
  3. CHOLECALCIFEROL [Concomitant]
  4. IRON (UNSPECIFIED) [Concomitant]

REACTIONS (5)
  - Electrocardiogram QT prolonged [Recovered/Resolved]
  - Hypoglycaemia [Recovered/Resolved]
  - Convulsion [Recovered/Resolved]
  - Suicide attempt [Recovered/Resolved]
  - Drug level increased [Recovering/Resolving]
